FAERS Safety Report 16356725 (Version 1)
Quarter: 2019Q2

REPORT INFORMATION
  Report Type: Spontaneous
  Country: CN (occurrence: CN)
  Receive Date: 20190527
  Receipt Date: 20190527
  Transmission Date: 20190711
  Serious: Yes (Other)
  Sender: FDA-Public Use
  Company Number: CN-BAXTER-2019BAX010276

PATIENT
  Age: 53 Year
  Sex: Female
  Weight: 64 kg

DRUGS (12)
  1. TAXOTERE [Suspect]
     Active Substance: DOCETAXEL
     Indication: BREAST CANCER FEMALE
     Dosage: FIRST CHEMOTHERAPY. TAXOTERE + NS
     Route: 041
  2. ENDOXAN [Suspect]
     Active Substance: CYCLOPHOSPHAMIDE
     Dosage: SECOND CHEMOTHERAPY. ENDOXAN 980 MG + NS 50 ML
     Route: 042
     Dates: start: 20190410, end: 20190410
  3. 0.9% SODIUM CHLORIDE INJECTION [Suspect]
     Active Substance: SODIUM CHLORIDE
     Dosage: FIRST CHEMOTHERAPY. TAXOTERE + NS
     Route: 041
  4. 0.9% SODIUM CHLORIDE INJECTION [Suspect]
     Active Substance: SODIUM CHLORIDE
     Dosage: SECOND CHEMOTHERAPY. TAXOTERE 122 MG + NS 250 ML
     Route: 041
     Dates: start: 20190410, end: 20190410
  5. TAXOTERE [Suspect]
     Active Substance: DOCETAXEL
     Dosage: SECOND CHEMOTHERAPY. TAXOTERE 122 MG + NS 250 ML
     Route: 041
     Dates: start: 20190410, end: 20190410
  6. ENDOXAN [Suspect]
     Active Substance: CYCLOPHOSPHAMIDE
     Dosage: DRUG RE-INTRODUCED. ENDOXAN + NS
     Route: 042
  7. 0.9% SODIUM CHLORIDE INJECTION [Suspect]
     Active Substance: SODIUM CHLORIDE
     Dosage: SECOND CHEMOTHERAPY. ENDOXAN 980 MG + NS 50 ML
     Route: 042
     Dates: start: 20190410, end: 20190410
  8. 0.9% SODIUM CHLORIDE INJECTION [Suspect]
     Active Substance: SODIUM CHLORIDE
     Dosage: DRUG RE-INTRODUCED. ENDOXAN + NS
     Route: 042
  9. 0.9% SODIUM CHLORIDE INJECTION [Suspect]
     Active Substance: SODIUM CHLORIDE
     Indication: MEDICATION DILUTION
     Dosage: FIRST CHEMOTHERAPY. ENDOXAN + NS
     Route: 042
  10. TAXOTERE [Suspect]
     Active Substance: DOCETAXEL
     Dosage: DRUG RE-INTRODUCED. TAXOTERE + NS
     Route: 041
  11. ENDOXAN [Suspect]
     Active Substance: CYCLOPHOSPHAMIDE
     Indication: BREAST CANCER FEMALE
     Dosage: FIRST CHEMOTHERAPY. ENDOXAN + NORMAL SALINE (NS)
     Route: 042
  12. 0.9% SODIUM CHLORIDE INJECTION [Suspect]
     Active Substance: SODIUM CHLORIDE
     Dosage: DRUG RE-INTRODUCED. TAXOTERE + NS
     Route: 041

REACTIONS (2)
  - Agranulocytosis [Recovered/Resolved]
  - Leukopenia [Recovered/Resolved]

NARRATIVE: CASE EVENT DATE: 20190419
